FAERS Safety Report 13349584 (Version 1)
Quarter: 2017Q1

REPORT INFORMATION
  Report Type: Spontaneous
  Country: IN (occurrence: IN)
  Receive Date: 20170320
  Receipt Date: 20170320
  Transmission Date: 20170428
  Serious: No
  Sender: FDA-Public Use
  Company Number: IN-LUPIN PHARMACEUTICALS INC.-E2B_00006015

PATIENT
  Age: 21 Year
  Sex: Male

DRUGS (2)
  1. CEFIXIME. [Suspect]
     Active Substance: CEFIXIME
     Indication: PYREXIA
     Dosage: 1 DF,QD,
     Route: 048
     Dates: start: 20160810, end: 20160810
  2. CALPOL [Concomitant]
     Active Substance: ACETAMINOPHEN
     Indication: PYREXIA
     Dosage: UNK UNK,UNK,UNKNOWN
     Route: 065

REACTIONS (2)
  - Pruritus generalised [Recovering/Resolving]
  - Self-medication [Unknown]

NARRATIVE: CASE EVENT DATE: 20160810
